FAERS Safety Report 9887556 (Version 1)
Quarter: 2014Q1

REPORT INFORMATION
  Report Type: Spontaneous
  Country: US (occurrence: US)
  Receive Date: 20140211
  Receipt Date: 20140211
  Transmission Date: 20141002
  Serious: Yes (Death, Life-Threatening, Hospitalization)
  Sender: FDA-Public Use
  Company Number: US-ACCORD-021763

PATIENT
  Age: 60 Year
  Sex: Female

DRUGS (3)
  1. FLUOROURACIL [Suspect]
     Indication: COLON CANCER METASTATIC
     Dosage: SYSTEMIC THERAPY IN FIRST CYCLE  WITH 5-FU 400 MG/M2 IV?PUSH, 2400 MG/M2 IV INFUSION OVER 46 HRS
  2. FOLINIC ACID [Suspect]
     Indication: COLON CANCER METASTATIC
     Dosage: SYSTEMIC THERAPY IN FIRST CYCLE
  3. OXALIPLATIN [Suspect]
     Indication: COLON CANCER METASTATIC
     Dosage: SYSTEMIC THERAPY IN FIRST CYCLE

REACTIONS (8)
  - Pancytopenia [Recovered/Resolved]
  - Mucosal inflammation [Unknown]
  - Dehydration [Unknown]
  - Clostridium difficile infection [Unknown]
  - Large intestine perforation [Unknown]
  - Death [Fatal]
  - Peritonitis [Unknown]
  - Pain [Unknown]
